FAERS Safety Report 7771003-4 (Version None)
Quarter: 2011Q3

REPORT INFORMATION
  Report Type: 
  Country: None (occurrence: None)
  Receive Date: 20110922
  Receipt Date: 20100824
  Transmission Date: 20111222
  Serious: No
  Sender: FDA-Public Use
  Company Number: US-ASTRAZENECA-2010SE39882

PATIENT
  Age: 644 Month
  Sex: Female
  Weight: 154.2 kg

DRUGS (4)
  1. SEROQUEL XR [Suspect]
     Indication: INSOMNIA
     Route: 048
     Dates: start: 20060101, end: 20100701
  2. SEROQUEL XR [Suspect]
     Indication: MENOPAUSE
     Route: 048
     Dates: start: 20060101, end: 20100701
  3. SEROQUEL XR [Suspect]
     Route: 048
     Dates: start: 20100701
  4. SEROQUEL XR [Suspect]
     Route: 048
     Dates: start: 20100701

REACTIONS (5)
  - WEIGHT INCREASED [None]
  - INCORRECT DOSE ADMINISTERED [None]
  - IRRITABILITY [None]
  - ABNORMAL DREAMS [None]
  - INSOMNIA [None]
